FAERS Safety Report 18889376 (Version 1)
Quarter: 2021Q1

REPORT INFORMATION
  Report Type: Spontaneous
  Country: IR (occurrence: IR)
  Receive Date: 20210213
  Receipt Date: 20210213
  Transmission Date: 20210420
  Serious: No
  Sender: FDA-Public Use
  Company Number: IR-ALKEM LABORATORIES LIMITED-IR-ALKEM-2020-01285

PATIENT

DRUGS (1)
  1. GABAPENTIN. [Suspect]
     Active Substance: GABAPENTIN
     Indication: URAEMIC PRURITUS
     Dosage: 400 MILLIGRAM TWICE WEEKLY
     Route: 065

REACTIONS (1)
  - Dizziness [Recovered/Resolved]
